FAERS Safety Report 12381011 (Version 1)
Quarter: 2016Q2

REPORT INFORMATION
  Report Type: Spontaneous
  Country: US (occurrence: US)
  Receive Date: 20160518
  Receipt Date: 20160518
  Transmission Date: 20160815
  Serious: No
  Sender: FDA-Public Use
  Company Number: US-WATSON-2015-28386

PATIENT
  Sex: Female
  Weight: 67.59 kg

DRUGS (1)
  1. ACARBOSE (WATSON LABORATORIES) [Suspect]
     Active Substance: ACARBOSE
     Indication: BLOOD GLUCOSE ABNORMAL
     Dosage: UNK, UNKNOWN
     Route: 065

REACTIONS (3)
  - Drug effect increased [None]
  - Hypoglycaemia [Recovered/Resolved]
  - Feeling cold [Recovered/Resolved]
